FAERS Safety Report 6104717-2 (Version None)
Quarter: 2009Q1

REPORT INFORMATION
  Report Type: 
  Country: None (occurrence: None)
  Receive Date: 20090304
  Receipt Date: 20090217
  Transmission Date: 20090719
  Serious: Yes (Death)
  Sender: FDA-Public Use
  Company Number: 2009020086

PATIENT
  Age: 17 Year
  Sex: Male

DRUGS (5)
  1. CARISOPRODOL [Suspect]
     Dosage: ORAL
     Route: 048
  2. PHENCYCLIDINE [Suspect]
     Dosage: ORAL
     Route: 048
  3. ALPRAZOLAM [Suspect]
     Dosage: ORAL
     Route: 048
  4. METHADONE HCL [Suspect]
     Dosage: ORAL
     Route: 048
  5. ETHANOL [Suspect]
     Dosage: ORAL
     Route: 048

REACTIONS (3)
  - CARDIAC ARREST [None]
  - COMPLETED SUICIDE [None]
  - RESPIRATORY ARREST [None]
